FAERS Safety Report 5564582-9 (Version None)
Quarter: 2007Q4

REPORT INFORMATION
  Report Type: 
  Country: None (occurrence: None)
  Receive Date: 20071218
  Receipt Date: 20071207
  Transmission Date: 20080405
  Serious: Yes (Other)
  Sender: FDA-Public Use
  Company Number: CH-AMGEN-UK256286

PATIENT

DRUGS (2)
  1. KINERET [Suspect]
     Indication: DRUG LEVEL
     Route: 058
  2. UNSPECIFIED ANTIDIABETIC AGENT [Concomitant]
     Route: 065

REACTIONS (2)
  - INJECTION SITE REACTION [None]
  - URINARY TRACT INFECTION [None]
